FAERS Safety Report 15993902 (Version 1)
Quarter: 2019Q1

REPORT INFORMATION
  Report Type: Spontaneous
  Country: AU (occurrence: AU)
  Receive Date: 20190222
  Receipt Date: 20190222
  Transmission Date: 20190418
  Serious: Yes (Hospitalization, Other)
  Sender: FDA-Public Use
  Company Number: AU-IPCA LABORATORIES LIMITED-IPC-2019-AU-000200

PATIENT

DRUGS (3)
  1. METOPROLOL. [Suspect]
     Active Substance: METOPROLOL
     Indication: LONG QT SYNDROME
     Dosage: 75 MG, BID
     Route: 065
  2. METOPROLOL. [Suspect]
     Active Substance: METOPROLOL
     Dosage: 25 MG, BID
     Route: 065
  3. PROPRANOLOL [Suspect]
     Active Substance: PROPRANOLOL HYDROCHLORIDE
     Indication: LONG QT SYNDROME
     Dosage: UNK
     Route: 065

REACTIONS (7)
  - Sleep terror [Unknown]
  - Drug dependence [Unknown]
  - Long QT syndrome [Recovering/Resolving]
  - Overdose [Unknown]
  - Depression [Recovering/Resolving]
  - Drug intolerance [Unknown]
  - Condition aggravated [Recovering/Resolving]
